FAERS Safety Report 8524522 (Version 16)
Quarter: 2016Q4

REPORT INFORMATION
  Report Type: Report from Study
  Country: CA (occurrence: CA)
  Receive Date: 20120420
  Receipt Date: 20161226
  Transmission Date: 20170207
  Serious: Yes (Hospitalization, Other)
  Sender: FDA-Public Use
  Company Number: CA-ROCHE-1059526

PATIENT
  Age: 65 Year
  Sex: Male
  Weight: 135 kg

DRUGS (22)
  1. HUMULIN N INSULIN [Concomitant]
  2. DIAMICRON [Concomitant]
     Active Substance: GLICLAZIDE
  3. SPIRONOLACTONE. [Concomitant]
     Active Substance: SPIRONOLACTONE
  4. OMEGA 3-6-9 (CANADA) [Concomitant]
  5. FOLIC ACID. [Concomitant]
     Active Substance: FOLIC ACID
  6. VITAMIN C [Concomitant]
     Active Substance: ASCORBIC ACID
  7. ACTEMRA [Suspect]
     Active Substance: TOCILIZUMAB
     Route: 042
     Dates: start: 20131112
  8. BISOPROLOL [Concomitant]
     Active Substance: BISOPROLOL
  9. DIOVAN [Concomitant]
     Active Substance: VALSARTAN
  10. PREDNISONE. [Concomitant]
     Active Substance: PREDNISONE
  11. ACTEMRA [Suspect]
     Active Substance: TOCILIZUMAB
     Route: 042
     Dates: start: 20160411
  12. ARAVA [Concomitant]
     Active Substance: LEFLUNOMIDE
  13. ACETYLSALICYLIC ACID [Concomitant]
     Active Substance: ASPIRIN
     Route: 065
  14. VITAMIN B COMPLEX [Concomitant]
     Active Substance: CYANOCOBALAMIN\DEXPANTHENOL\NIACINAMIDE\PYRIDOXINE HYDROCHLORIDE\RIBOFLAVIN 5^-PHOSPHATE SODIUM\THIAMINE HYDROCHLORIDE\VITAMIN B COMPLEX
  15. HYDRALAZINE [Concomitant]
     Active Substance: HYDRALAZINE HYDROCHLORIDE
  16. ACTEMRA [Suspect]
     Active Substance: TOCILIZUMAB
     Indication: RHEUMATOID ARTHRITIS
     Route: 042
     Dates: start: 20120327
  17. ACTEMRA [Suspect]
     Active Substance: TOCILIZUMAB
     Route: 042
     Dates: start: 20150602
  18. EFFEXOR [Concomitant]
     Active Substance: VENLAFAXINE HYDROCHLORIDE
  19. ATORVASTATIN [Concomitant]
     Active Substance: ATORVASTATIN
  20. FUROSEMIDE. [Concomitant]
     Active Substance: FUROSEMIDE
  21. ELTROXIN [Concomitant]
     Active Substance: LEVOTHYROXINE
  22. HALIBUT OIL [Concomitant]

REACTIONS (18)
  - Myocardial infarction [Unknown]
  - Laceration [Not Recovered/Not Resolved]
  - Nasopharyngitis [Recovered/Resolved]
  - Limb injury [Recovered/Resolved]
  - Infection [Recovered/Resolved]
  - Joint swelling [Unknown]
  - Diarrhoea [Recovered/Resolved]
  - Hyperglycaemia [Unknown]
  - Ulcer haemorrhage [Recovered/Resolved]
  - Bronchitis [Recovered/Resolved]
  - Hip surgery [Not Recovered/Not Resolved]
  - Diabetic foot [Not Recovered/Not Resolved]
  - Malaise [Unknown]
  - Fall [Unknown]
  - Influenza [Recovered/Resolved]
  - Weight increased [Unknown]
  - Weight decreased [Unknown]
  - Hypotension [Unknown]

NARRATIVE: CASE EVENT DATE: 2013
